FAERS Safety Report 6732585-4 (Version None)
Quarter: 2010Q2

REPORT INFORMATION
  Report Type: 
  Country: None (occurrence: None)
  Receive Date: 20100514
  Receipt Date: 20100506
  Transmission Date: 20101027
  Serious: Yes (Other)
  Sender: FDA-Public Use
  Company Number: 2010SP026196

PATIENT
  Age: 45 Year
  Sex: Female

DRUGS (2)
  1. RIBAVIRIN [Suspect]
     Indication: HEPATITIS C
     Dosage: 400 MG; BID;
  2. PEGINTERFERON ALFA-2A [Suspect]
     Indication: HEPATITIS C
     Dosage: 180 MCG; QW; SC, 90 MCG; QW; SC
     Route: 058

REACTIONS (10)
  - ABDOMINAL DISTENSION [None]
  - ABDOMINAL PAIN [None]
  - ALANINE AMINOTRANSFERASE INCREASED [None]
  - ANAEMIA [None]
  - ASPARTATE AMINOTRANSFERASE INCREASED [None]
  - COELIAC DISEASE [None]
  - LETHARGY [None]
  - NAUSEA [None]
  - VOMITING [None]
  - WEIGHT DECREASED [None]
